FAERS Safety Report 8419925-5 (Version None)
Quarter: 2012Q2

REPORT INFORMATION
  Report Type: 
  Country: None (occurrence: None)
  Receive Date: 20120607
  Receipt Date: 20120601
  Transmission Date: 20120825
  Serious: Yes (Other)
  Sender: FDA-Public Use
  Company Number: US-AMGEN-USASP2012029382

PATIENT
  Age: 58 Year
  Sex: Female
  Weight: 61.9 kg

DRUGS (6)
  1. FILGRASTIM [Suspect]
     Indication: BREAST CANCER
     Dosage: UNK, PER CHEMO REGIM
     Route: 058
     Dates: start: 20090519
  2. PEGFILGRASTIM [Suspect]
     Indication: BREAST CANCER
     Dosage: 6 MG, PER CHEMO REGIM
     Route: 058
     Dates: start: 20090519
  3. PACLITAXEL [Suspect]
     Indication: BREAST CANCER
     Dosage: 80 UNK, PER CHEMO REGIM
     Dates: start: 20090922
  4. BEVACIZUMAB [Suspect]
     Indication: BREAST CANCER
     Dosage: BLINDED
     Route: 042
     Dates: start: 20090519, end: 20090519
  5. DOXORUBICIN HCL [Suspect]
     Indication: BREAST CANCER
     Dosage: 60 MG/M2, PER CHEMO REGIM
     Route: 042
     Dates: start: 20090519
  6. CYCLOPHOSPHAMIDE [Suspect]
     Indication: BREAST CANCER
     Dosage: 600 MG/M2, PER CHEMO REGIM
     Route: 042
     Dates: start: 20090519

REACTIONS (2)
  - LEFT VENTRICULAR DYSFUNCTION [None]
  - EJECTION FRACTION DECREASED [None]
